FAERS Safety Report 7429654-2 (Version None)
Quarter: 2011Q2

REPORT INFORMATION
  Report Type: 
  Country: None (occurrence: None)
  Receive Date: 20110421
  Receipt Date: 20110411
  Transmission Date: 20111010
  Serious: Yes (Hospitalization)
  Sender: FDA-Public Use
  Company Number: JP-JNJFOC-20110402420

PATIENT
  Sex: Female
  Weight: 41 kg

DRUGS (7)
  1. GOLIMUMAB [Suspect]
     Route: 058
  2. GOLIMUMAB [Suspect]
     Indication: RHEUMATOID ARTHRITIS
     Route: 058
  3. GASTER [Concomitant]
     Indication: GASTROINTESTINAL DISORDER THERAPY
     Route: 048
  4. FOSAMAC [Concomitant]
     Indication: OSTEOPOROSIS
     Route: 048
  5. RHEUMATREX [Concomitant]
     Indication: RHEUMATOID ARTHRITIS
     Route: 048
  6. GOLIMUMAB [Suspect]
     Route: 058
  7. FOLIC ACID [Concomitant]
     Indication: PROPHYLAXIS
     Route: 048

REACTIONS (1)
  - COLONIC POLYP [None]
